FAERS Safety Report 4759995-9 (Version None)
Quarter: 2005Q3

REPORT INFORMATION
  Report Type: 
  Country: None (occurrence: None)
  Receive Date: 20050902
  Receipt Date: 20050222
  Transmission Date: 20060218
  Serious: Yes (Hospitalization)
  Sender: FDA-Public Use
  Company Number: GBWYE456124FEB05

PATIENT
  Sex: Female

DRUGS (11)
  1. ENBREL [Suspect]
     Indication: JUVENILE ARTHRITIS
     Dosage: UNKNOWN
     Route: 058
     Dates: start: 20031130
  2. METHOTREXATE [Concomitant]
  3. CORTICOSTEROID NOS [Concomitant]
  4. ANTIINFLAMMATORY NOS [Concomitant]
  5. FOLIC ACID [Concomitant]
  6. PREDNISOLONE [Concomitant]
  7. INDOMETHACIN [Concomitant]
  8. INDOMETHACIN [Concomitant]
  9. OMEPRAZOLE [Concomitant]
  10. CALCIUM CARBONATE [Concomitant]
  11. PARACETAMOL [Concomitant]

REACTIONS (4)
  - CONDITION AGGRAVATED [None]
  - MALAISE [None]
  - PYELONEPHRITIS [None]
  - URINARY TRACT INFECTION [None]
